FAERS Safety Report 15030798 (Version 3)
Quarter: 2019Q3

REPORT INFORMATION
  Report Type: Spontaneous
  Country: US (occurrence: US)
  Receive Date: 20180619
  Receipt Date: 20190724
  Transmission Date: 20191004
  Serious: Yes (Hospitalization, Other)
  Sender: FDA-Public Use
  Company Number: US-ACTELION-A-NJ2018-173667

PATIENT
  Sex: Female
  Weight: 60.77 kg

DRUGS (2)
  1. ELIQUIS [Concomitant]
     Active Substance: APIXABAN
  2. OPSUMIT [Suspect]
     Active Substance: MACITENTAN
     Indication: PULMONARY HYPERTENSION
     Dosage: 10 MG, QD
     Route: 048
     Dates: start: 20170825

REACTIONS (7)
  - Coronary artery disease [Unknown]
  - Myocardial ischaemia [Unknown]
  - Dyspnoea exertional [Unknown]
  - Ill-defined disorder [Unknown]
  - Dyspnoea [Unknown]
  - Visual impairment [Unknown]
  - Dehydration [Unknown]
